FAERS Safety Report 16514341 (Version 2)
Quarter: 2019Q3

REPORT INFORMATION
  Report Type: Spontaneous
  Country: US (occurrence: US)
  Receive Date: 20190702
  Receipt Date: 20190711
  Transmission Date: 20191004
  Serious: Yes (Other)
  Sender: FDA-Public Use
  Company Number: US-ABBVIE-19K-163-2831985-00

PATIENT
  Age: 16 Year
  Sex: Female

DRUGS (2)
  1. LUPRON DEPOT [Suspect]
     Active Substance: LEUPROLIDE ACETATE
     Indication: ENDOMETRIOSIS
     Route: 030
     Dates: start: 20181221, end: 20190514
  2. LUPRON DEPOT [Suspect]
     Active Substance: LEUPROLIDE ACETATE
     Route: 030
     Dates: start: 2019, end: 2019

REACTIONS (8)
  - Injection site swelling [Unknown]
  - Injection site mass [Recovered/Resolved]
  - Injection site necrosis [Unknown]
  - Injection site induration [Unknown]
  - Sciatica [Unknown]
  - Injection site pain [Unknown]
  - Injection site abscess [Unknown]
  - Injection site erythema [Unknown]

NARRATIVE: CASE EVENT DATE: 20181221
